FAERS Safety Report 12476039 (Version 1)
Quarter: 2016Q2

REPORT INFORMATION
  Report Type: Spontaneous
  Country: US (occurrence: US)
  Receive Date: 20160617
  Receipt Date: 20160617
  Transmission Date: 20160815
  Serious: No
  Sender: FDA-Public Use
  Company Number: US-TEVA-667919USA

PATIENT
  Age: 43 Year
  Sex: Male

DRUGS (7)
  1. COPAXONE [Suspect]
     Active Substance: GLATIRAMER ACETATE
     Indication: MULTIPLE SCLEROSIS
     Route: 058
     Dates: start: 20160107
  2. VITAMIN D [Concomitant]
     Active Substance: CHOLECALCIFEROL
  3. LOVASTATIN. [Concomitant]
     Active Substance: LOVASTATIN
  4. MULTIVITAMINS [Concomitant]
     Active Substance: VITAMINS
  5. VITAMIN B12 [Concomitant]
     Active Substance: CYANOCOBALAMIN
  6. FISH OIL [Concomitant]
     Active Substance: FISH OIL
  7. IBUPROFEN. [Concomitant]
     Active Substance: IBUPROFEN

REACTIONS (3)
  - Hypoaesthesia [Unknown]
  - Erectile dysfunction [Unknown]
  - Photophobia [Unknown]

NARRATIVE: CASE EVENT DATE: 20160501
